FAERS Safety Report 9675636 (Version 1)
Quarter: 2013Q4

REPORT INFORMATION
  Report Type: Spontaneous
  Country: DE (occurrence: DE)
  Receive Date: 20131107
  Receipt Date: 20131107
  Transmission Date: 20140711
  Serious: Yes (Other)
  Sender: FDA-Public Use
  Company Number: DE-ELI_LILLY_AND_COMPANY-DE201310008640

PATIENT
  Sex: Male

DRUGS (4)
  1. CYMBALTA [Suspect]
     Indication: ANXIETY DISORDER
     Dosage: 30 MG, UNKNOWN
     Route: 048
     Dates: start: 201303
  2. CYMBALTA [Suspect]
     Indication: NEUROPATHY PERIPHERAL
     Dosage: 60 MG, UNKNOWN
     Route: 048
  3. CODIOVAN [Concomitant]
     Indication: PRODUCT USED FOR UNKNOWN INDICATION
     Dosage: UNK, UNKNOWN
     Route: 065
  4. L-THYROXIN [Concomitant]
     Indication: PRODUCT USED FOR UNKNOWN INDICATION
     Dosage: UNK, UNKNOWN
     Route: 065

REACTIONS (2)
  - Lipase increased [Not Recovered/Not Resolved]
  - Nausea [Not Recovered/Not Resolved]
